FAERS Safety Report 25615750 (Version 1)
Quarter: 2025Q3

REPORT INFORMATION
  Report Type: Spontaneous
  Country: CA (occurrence: CA)
  Receive Date: 20250729
  Receipt Date: 20250729
  Transmission Date: 20251020
  Serious: Yes (Hospitalization)
  Sender: AMGEN
  Company Number: CA-AMGEN-CANSP2025145751

PATIENT
  Age: 83 Year
  Sex: Male

DRUGS (5)
  1. MVASI [Suspect]
     Active Substance: BEVACIZUMAB-AWWB
     Indication: Product used for unknown indication
     Route: 065
  2. BISOPROLOL [Concomitant]
     Active Substance: BISOPROLOL
     Route: 065
  3. CANDESARTAN [Concomitant]
     Active Substance: CANDESARTAN
  4. DOCUSATE SODIUM [Concomitant]
     Active Substance: DOCUSATE SODIUM
  5. ASPIRIN [Concomitant]
     Active Substance: ASPIRIN

REACTIONS (6)
  - Acute pulmonary oedema [Recovering/Resolving]
  - Dyspnoea [Recovering/Resolving]
  - Heart failure with reduced ejection fraction [Recovering/Resolving]
  - Hypertension [Recovering/Resolving]
  - Hypervolaemia [Recovering/Resolving]
  - Myocardial ischaemia [Recovering/Resolving]
